FAERS Safety Report 6721044-0 (Version None)
Quarter: 2010Q2

REPORT INFORMATION
  Report Type: 
  Country: None (occurrence: None)
  Receive Date: 20100512
  Receipt Date: 20100429
  Transmission Date: 20101027
  Serious: Yes (Hospitalization, Other)
  Sender: FDA-Public Use
  Company Number: HR-BAYER-201023902GPV

PATIENT
  Age: 40 Year
  Sex: Female

DRUGS (1)
  1. MIRENA [Suspect]
     Indication: MENORRHAGIA
     Route: 015
     Dates: start: 20100129

REACTIONS (6)
  - DEVICE BREAKAGE [None]
  - DEVICE DISLOCATION [None]
  - DEVICE EXPULSION [None]
  - MENORRHAGIA [None]
  - SHOCK HAEMORRHAGIC [None]
  - VAGINAL HAEMORRHAGE [None]
